FAERS Safety Report 8554189-3 (Version None)
Quarter: 2012Q3

REPORT INFORMATION
  Report Type: 
  Country: None (occurrence: None)
  Receive Date: 20120731
  Receipt Date: 20120727
  Transmission Date: 20120928
  Serious: Yes (Death)
  Sender: FDA-Public Use
  Company Number: IT-ELI_LILLY_AND_COMPANY-IT201106006422

PATIENT
  Sex: Female

DRUGS (8)
  1. NAPROXEN SODIUM [Concomitant]
     Indication: MUSCULOSKELETAL PAIN
     Dosage: UNK
     Dates: start: 20101216, end: 20110504
  2. GEMCITABINE HYDROCHLORIDE [Suspect]
     Indication: HODGKIN'S DISEASE
     Dosage: UNK, QOD
     Route: 042
     Dates: start: 20110420, end: 20110427
  3. LEVOTHYROXINE SODIUM [Concomitant]
     Indication: HYPOTHYROIDISM
     Dosage: UNK
     Dates: start: 20090727, end: 20110504
  4. ALLOPURINOL [Concomitant]
     Dosage: UNK
     Dates: start: 20101216, end: 20110504
  5. RABEPRAZOLE SODIUM [Concomitant]
     Indication: GASTROOESOPHAGEAL REFLUX DISEASE
     Dosage: UNK
     Dates: start: 20090902, end: 20110504
  6. ACETYLSALICYLIC ACID SRT [Concomitant]
     Indication: ANTICOAGULANT THERAPY
     Dosage: UNK
     Dates: start: 20101130, end: 20110504
  7. DEXAMETHASONE PHOSPHATE [Concomitant]
     Indication: HODGKIN'S DISEASE
     Dosage: 8 MG, UNK
     Dates: start: 20110420, end: 20110427
  8. PREDNISONE [Concomitant]
     Indication: HODGKIN'S DISEASE
     Dosage: 25 MG, QD
     Route: 048
     Dates: start: 20110324, end: 20110504

REACTIONS (4)
  - DYSPNOEA [None]
  - INFECTION [None]
  - OFF LABEL USE [None]
  - PANCYTOPENIA [None]
